FAERS Safety Report 9737157 (Version 2)
Quarter: 2013Q4

REPORT INFORMATION
  Report Type: Spontaneous
  Country: US (occurrence: GB)
  Receive Date: 20131206
  Receipt Date: 20131218
  Transmission Date: 20140711
  Serious: Yes (Disabling)
  Sender: FDA-Public Use
  Company Number: GB-FRI-1000051933

PATIENT
  Age: 65 Year
  Sex: Female
  Weight: 68 kg

DRUGS (5)
  1. LINACLOTIDE [Suspect]
     Indication: CONSTIPATION
     Dosage: 290 MCG
     Route: 048
  2. ASPIRIN [Concomitant]
  3. FELODIPINE SANDOZ [Concomitant]
  4. IRBESARTAN [Concomitant]
  5. SIMVASTATIN [Concomitant]

REACTIONS (2)
  - Rectal haemorrhage [Recovering/Resolving]
  - Off label use [Unknown]
